FAERS Safety Report 11618137 (Version 3)
Quarter: 2016Q2

REPORT INFORMATION
  Report Type: Report from Study
  Country: DE (occurrence: DE)
  Receive Date: 20151010
  Receipt Date: 20160404
  Transmission Date: 20160815
  Serious: Yes (Hospitalization, Other)
  Sender: FDA-Public Use
  Company Number: PHHY2015DE104029

PATIENT
  Age: 1 Year
  Sex: Male

DRUGS (7)
  1. VOTUBIA [Suspect]
     Active Substance: EVEROLIMUS
     Indication: ASTROCYTOMA, LOW GRADE
     Dosage: 1.5 MG, DAILY (QD)
     Route: 048
     Dates: start: 20131115
  2. CARNITIN [Concomitant]
     Indication: EPILEPSY
     Dosage: 240 OT, QD
     Route: 048
     Dates: end: 20150519
  3. PROPRANOLOL [Concomitant]
     Active Substance: PROPRANOLOL\PROPRANOLOL HYDROCHLORIDE
     Indication: BENIGN CARDIAC NEOPLASM
     Dosage: 4 OT, QD
     Route: 048
  4. VIGABATRIN [Concomitant]
     Active Substance: VIGABATRIN
     Indication: EPILEPSY
     Dosage: 1000 MG, QD (DAILY)
     Route: 048
     Dates: start: 201406
  5. D-FLUORETTEN [Concomitant]
     Indication: PROPHYLAXIS
     Dosage: 500 IU (IE), DAILY (QD)
     Route: 048
     Dates: start: 201311
  6. TOPIRAMAT [Concomitant]
     Active Substance: TOPIRAMATE
     Indication: EPILEPSY
     Dosage: 50 MG, QD (DAILY)
     Route: 048
     Dates: start: 201408
  7. VALPROATE [Concomitant]
     Active Substance: VALPROIC ACID
     Indication: EPILEPSY
     Dosage: 240 MG, QD
     Route: 048
     Dates: start: 201408

REACTIONS (4)
  - Diarrhoea [Unknown]
  - Drug administered to patient of inappropriate age [Unknown]
  - Bronchitis chronic [Recovering/Resolving]
  - Flatulence [Unknown]

NARRATIVE: CASE EVENT DATE: 201407
